FAERS Safety Report 18807783 (Version 1)
Quarter: 2021Q1

REPORT INFORMATION
  Report Type: Spontaneous
  Country: UA (occurrence: UA)
  Receive Date: 20210129
  Receipt Date: 20210129
  Transmission Date: 20210419
  Serious: Yes (Hospitalization)
  Sender: FDA-Public Use
  Company Number: UA-ASTRAZENECA-2021A018897

PATIENT
  Age: 63 Year
  Sex: Female

DRUGS (2)
  1. PULMICORT TURBUHALER [Suspect]
     Active Substance: BUDESONIDE
     Indication: OFF LABEL USE
     Dosage: 200 ??G FOR 1 INHALATION 2?3 TIMES DAILY AS REQUIRED
     Route: 055
  2. PULMICORT TURBUHALER [Suspect]
     Active Substance: BUDESONIDE
     Indication: OFF LABEL USE
     Dosage: 200.0UG AS REQUIRED
     Route: 055

REACTIONS (3)
  - COVID-19 [Unknown]
  - Headache [Not Recovered/Not Resolved]
  - Dysphonia [Recovered/Resolved]
